FAERS Safety Report 5221135-X (Version None)
Quarter: 2007Q1

REPORT INFORMATION
  Report Type: 
  Country: None (occurrence: None)
  Receive Date: 20070126
  Receipt Date: 20070118
  Transmission Date: 20070707
  Serious: Yes (Other)
  Sender: FDA-Public Use
  Company Number: AR-JNJFOC-20070102620

PATIENT
  Age: 64 Year
  Sex: Female
  Weight: 73 kg

DRUGS (4)
  1. TOPAMAC [Suspect]
     Route: 048
  2. TOPAMAC [Suspect]
     Route: 048
  3. TOPAMAC [Suspect]
     Indication: EPILEPSY
     Route: 048
  4. LORAZEPAM [Concomitant]

REACTIONS (4)
  - AMNESIA [None]
  - MEMORY IMPAIRMENT [None]
  - MUTISM [None]
  - SPEECH DISORDER [None]
